FAERS Safety Report 21569775 (Version 2)
Quarter: 2022Q4

REPORT INFORMATION
  Report Type: Spontaneous
  Country: US (occurrence: US)
  Receive Date: 20221109
  Receipt Date: 20221122
  Transmission Date: 20230113
  Serious: No
  Sender: FDA-Public Use
  Company Number: US-ORGANON-O2210USA001034

PATIENT
  Age: 30 Year
  Sex: Female
  Weight: 138.1 kg

DRUGS (1)
  1. NEXPLANON [Suspect]
     Active Substance: ETONOGESTREL
     Dosage: 1 IMPLANT (ROD) OF 68 MG EVERY 3 YEARS
     Route: 059
     Dates: start: 20191027, end: 20221012

REACTIONS (3)
  - Device breakage [Recovered/Resolved]
  - Hot flush [Unknown]
  - Nausea [Unknown]

NARRATIVE: CASE EVENT DATE: 20200601
